FAERS Safety Report 17724501 (Version 1)
Quarter: 2020Q2

REPORT INFORMATION
  Report Type: Report from Study
  Country: US (occurrence: US)
  Receive Date: 20200429
  Receipt Date: 20200429
  Transmission Date: 20200714
  Serious: Yes (Other)
  Sender: FDA-Public Use
  Company Number: US-JNJFOC-20200414178

PATIENT
  Sex: Male

DRUGS (3)
  1. OTEZLA [Suspect]
     Active Substance: APREMILAST
     Route: 065
  2. STELARA [Suspect]
     Active Substance: USTEKINUMAB
     Indication: PSORIASIS
     Route: 058
  3. ENBREL [Concomitant]
     Active Substance: ETANERCEPT

REACTIONS (6)
  - Left ventricular failure [Unknown]
  - Cardiomyopathy [Unknown]
  - Headache [Unknown]
  - Hypertension [Unknown]
  - Mitral valve incompetence [Unknown]
  - Abdominal pain lower [Unknown]
